FAERS Safety Report 4604912-5 (Version None)
Quarter: 2005Q1

REPORT INFORMATION
  Report Type: 
  Country: None (occurrence: None)
  Receive Date: 20050310
  Receipt Date: 20050310
  Transmission Date: 20050727
  Serious: Yes (Other)
  Sender: FDA-Public Use
  Company Number: None

PATIENT
  Age: 68 Year
  Sex: Female
  Weight: 79.3795 kg

DRUGS (1)
  1. GLYBURIDE + METFORMIN      5MG/500MG     IVAX [Suspect]
     Indication: DIABETES MELLITUS
     Dates: start: 20050131, end: 20050303

REACTIONS (2)
  - DIABETES MELLITUS INADEQUATE CONTROL [None]
  - PHARMACEUTICAL PRODUCT COMPLAINT [None]
